FAERS Safety Report 21742417 (Version 1)
Quarter: 2022Q4

REPORT INFORMATION
  Report Type: Spontaneous
  Country: FR (occurrence: FR)
  Receive Date: 20221216
  Receipt Date: 20221216
  Transmission Date: 20230113
  Serious: Yes (Death)
  Sender: FDA-Public Use
  Company Number: FR-SEATTLE GENETICS-2022SGN11952

PATIENT

DRUGS (2)
  1. ADCETRIS [Suspect]
     Active Substance: BRENTUXIMAB VEDOTIN
     Indication: Peripheral T-cell lymphoma unspecified
     Dosage: 1.8 MG/KG ON THE FIRST DAY OF EACH CYCLE.  CYCLES WERE REPEATED EVERY 3 WEEKS.
     Route: 065
  2. BENDAMUSTINE [Suspect]
     Active Substance: BENDAMUSTINE
     Indication: Peripheral T-cell lymphoma unspecified
     Dosage: 90 MG/M2 ON DAY 1 AND DAY 2.  CYCLES WERE REPEATED EVERY 3 WEEKS
     Route: 065

REACTIONS (1)
  - Toxicity to various agents [Fatal]
